FAERS Safety Report 15530486 (Version 4)
Quarter: 2020Q1

REPORT INFORMATION
  Report Type: Spontaneous
  Country: US (occurrence: US)
  Receive Date: 20181018
  Receipt Date: 20200331
  Transmission Date: 20200409
  Serious: Yes (Life-Threatening)
  Sender: FDA-Public Use
  Company Number: US-PFIZER INC-2018423834

PATIENT
  Age: 70 Year
  Sex: Female
  Weight: 56.25 kg

DRUGS (1)
  1. GABAPENTIN. [Suspect]
     Active Substance: GABAPENTIN
     Indication: NEUROPATHY PERIPHERAL
     Dosage: UNK UNK, 2X/DAY
     Dates: start: 2018, end: 2018

REACTIONS (7)
  - Dizziness [Recovered/Resolved]
  - Off label use [Unknown]
  - Dyspnoea [Unknown]
  - Body height decreased [Unknown]
  - Dehydration [Unknown]
  - Toxicity to various agents [Unknown]
  - Product use in unapproved indication [Unknown]

NARRATIVE: CASE EVENT DATE: 2018
